FAERS Safety Report 8154057-5 (Version None)
Quarter: 2012Q1

REPORT INFORMATION
  Report Type: 
  Country: None (occurrence: None)
  Receive Date: 20120221
  Receipt Date: 20120213
  Transmission Date: 20120608
  Serious: Yes (Other)
  Sender: FDA-Public Use
  Company Number: FR-BRISTOL-MYERS SQUIBB COMPANY-16336927

PATIENT
  Age: 24 Year
  Sex: Female
  Weight: 64 kg

DRUGS (5)
  1. ABILIFY [Suspect]
     Indication: BIPOLAR DISORDER
     Dosage: SINCE SEVERAL YEARS
     Route: 048
  2. EFFEXOR [Suspect]
     Route: 048
  3. DEPAKOTE [Suspect]
     Indication: BIPOLAR DISORDER
  4. VALPROIC ACID [Suspect]
     Route: 048
  5. LORAZEPAM [Suspect]
     Route: 048

REACTIONS (2)
  - PREGNANCY [None]
  - ABORTION INDUCED [None]
